FAERS Safety Report 20353712 (Version 1)
Quarter: 2022Q1

REPORT INFORMATION
  Report Type: Report from Study
  Country: BR (occurrence: BR)
  Receive Date: 20220120
  Receipt Date: 20220120
  Transmission Date: 20220423
  Serious: Yes (Other)
  Sender: FDA-Public Use
  Company Number: BR-ABBVIE-22K-020-4237309-00

PATIENT
  Age: 44 Year
  Sex: Female
  Weight: 54 kg

DRUGS (2)
  1. RINVOQ [Suspect]
     Active Substance: UPADACITINIB
     Indication: Rheumatoid arthritis
     Route: 048
     Dates: start: 20210415, end: 20211217
  2. RINVOQ [Suspect]
     Active Substance: UPADACITINIB
     Route: 048
     Dates: start: 20211222

REACTIONS (3)
  - Cataract subcapsular [Recovering/Resolving]
  - COVID-19 [Recovered/Resolved]
  - Parosmia [Recovered/Resolved]

NARRATIVE: CASE EVENT DATE: 20210601
